FAERS Safety Report 13139313 (Version 1)
Quarter: 2017Q1

REPORT INFORMATION
  Report Type: Spontaneous
  Country: US (occurrence: US)
  Receive Date: 20170123
  Receipt Date: 20170123
  Transmission Date: 20170428
  Serious: Yes (Other)
  Sender: FDA-Public Use
  Company Number: US-LANNETT COMPANY, INC.-US-2017LAN000220

PATIENT
  Age: 42 Year
  Sex: Male

DRUGS (2)
  1. HALOPERIDOL LACTATE. [Suspect]
     Active Substance: HALOPERIDOL LACTATE
     Indication: SCHIZOPHRENIA
  2. HALOPERIDOL LACTATE. [Suspect]
     Active Substance: HALOPERIDOL LACTATE
     Indication: AGITATION

REACTIONS (4)
  - Colonic pseudo-obstruction [Recovering/Resolving]
  - Respiratory distress [Recovering/Resolving]
  - Abdominal distension [Recovering/Resolving]
  - Wean from ventilator [None]
